FAERS Safety Report 10370527 (Version 1)
Quarter: 2014Q1

REPORT INFORMATION
  Report Type: Spontaneous
  Country: US (occurrence: None)
  Receive Date: 20140306
  Receipt Date: 20140306
  Transmission Date: 20141002
  Serious: Yes (Hospitalization)
  Sender: FDA-Public Use
  Company Number: 163-21880-13011052

PATIENT
  Age: 72 Year
  Sex: Male
  Weight: 108.86 kg

DRUGS (10)
  1. REVLIMID [Suspect]
     Indication: PLASMA CELL MYELOMA
     Route: 048
     Dates: start: 20120624
  2. AMLODIPINE BESYLATE (AMLODIPINE BESILATE) (UNKNOWN) [Concomitant]
  3. CRESTOR (ROSUVASTATIN) (TABLETS) [Concomitant]
  4. DEXAMETHASONE (DEXAMETHASONE) (UNKNOWN) [Concomitant]
  5. DIGOXIN (DIGOXIN) (TABLETS) [Concomitant]
  6. METOPROLOL SUCCINATE (METOPROLOL SUCCINATE) (UNKNOWN) [Concomitant]
  7. MULTIVITAMINS (MULTIVITAMINS) (CAPSULES) [Concomitant]
  8. SERTRALINE HCL (SERTRALINE HYDROCHLORIDE) (UNKNOWN) [Concomitant]
  9. ASPIRIN (ACETYLSALICYLIC ACID) (UNKNOWN) (ACETYLSALICYLIC ACID) [Concomitant]
  10. LEVOTHYROXINE (LEVOTHYROXINE SODIUM) (UNKNOWN) [Concomitant]

REACTIONS (3)
  - Atrial fibrillation [None]
  - Platelet count decreased [None]
  - Full blood count decreased [None]
